FAERS Safety Report 5121179-2 (Version None)
Quarter: 2006Q4

REPORT INFORMATION
  Report Type: 
  Country: None (occurrence: None)
  Receive Date: 20061002
  Receipt Date: 20060920
  Transmission Date: 20070319
  Serious: Yes (Other)
  Sender: FDA-Public Use
  Company Number: 230159

PATIENT

DRUGS (1)
  1. NUTROPIN AQ [Suspect]
     Indication: HYPOPITUITARISM
     Dosage: 0.58 ML, QD, SUBCUTANEOUS
     Route: 058

REACTIONS (4)
  - ACROMEGALY [None]
  - ARTHRITIS [None]
  - CARDIOVASCULAR DISORDER [None]
  - OSTEOPOROSIS [None]
